FAERS Safety Report 14901105 (Version 9)
Quarter: 2019Q1

REPORT INFORMATION
  Report Type: Report from Study
  Country: IL (occurrence: IL)
  Receive Date: 20180516
  Receipt Date: 20190320
  Transmission Date: 20190417
  Serious: Yes (Hospitalization, Other)
  Sender: FDA-Public Use
  Company Number: IL-ACTELION-A-CH2018-172197

PATIENT
  Age: 64 Year
  Sex: Female
  Weight: 65 kg

DRUGS (35)
  1. TYVASO [Concomitant]
     Active Substance: TREPROSTINIL
     Indication: PULMONARY ARTERIAL HYPERTENSION
  2. BERAPROST [Concomitant]
     Active Substance: BERAPROST
     Indication: PULMONARY ARTERIAL HYPERTENSION
  3. CADEX [Concomitant]
     Dosage: 1 MG, UNK
     Dates: start: 20180313
  4. VASPID [Concomitant]
     Dosage: UNK
     Dates: start: 2014, end: 20170315
  5. ZINNAT [Concomitant]
     Active Substance: CEFUROXIME AXETIL
     Dosage: UNK
     Dates: start: 20171017, end: 20171021
  6. UPTRAVI [Suspect]
     Active Substance: SELEXIPAG
     Indication: PULMONARY ARTERIAL HYPERTENSION
     Dosage: 200 MCG, BID
     Route: 048
     Dates: start: 20180503, end: 20180510
  7. CALCIUM SANDOZ [Concomitant]
     Active Substance: CALCIUM
     Dosage: UNK
     Dates: start: 20180128, end: 20180129
  8. UPTRAVI [Suspect]
     Active Substance: SELEXIPAG
     Dosage: 600 MCG, BID
     Route: 048
     Dates: start: 20190116
  9. FUSID [Concomitant]
     Dosage: UNK
     Dates: start: 2014, end: 20180516
  10. TAMIFLU [Concomitant]
     Active Substance: OSELTAMIVIR PHOSPHATE
     Dosage: UNK
     Dates: start: 20180122, end: 20180127
  11. REVATIO [Concomitant]
     Active Substance: SILDENAFIL CITRATE
     Dosage: UNK
     Dates: start: 20180123
  12. UPTRAVI [Suspect]
     Active Substance: SELEXIPAG
     Dosage: 400 MCG, BID
     Route: 048
     Dates: start: 20181210
  13. SILDENAFIL CITRATE. [Concomitant]
     Active Substance: SILDENAFIL CITRATE
  14. ZAROXOLYN [Concomitant]
     Active Substance: METOLAZONE
     Dosage: 5 MG, UNK
     Dates: start: 20170413, end: 20170902
  15. ZAROXOLYN [Concomitant]
     Active Substance: METOLAZONE
     Dosage: 5 MG, UNK
     Dates: start: 20180323
  16. IPRATROPIUM BROMIDE. [Concomitant]
     Active Substance: IPRATROPIUM BROMIDE
     Dosage: UNK
     Route: 055
     Dates: start: 20180123, end: 20180129
  17. ALDACTONE [Concomitant]
     Active Substance: SPIRONOLACTONE
     Dosage: UNK
     Dates: start: 20180313, end: 20180322
  18. TADALAFIL. [Concomitant]
     Active Substance: TADALAFIL
     Dosage: UNK
     Dates: start: 20170727, end: 20180122
  19. AEROVENT [Concomitant]
     Dosage: UNK
     Dates: start: 20171017, end: 20171018
  20. PRAMIN [Concomitant]
     Dosage: UNK
     Dates: start: 20180313, end: 20180313
  21. ALFACALCIDOL [Concomitant]
     Active Substance: ALFACALCIDOL
     Dosage: 0.25 UNK, UNK
  22. VASODIP [Concomitant]
     Active Substance: LERCANIDIPINE HYDROCHLORIDE
     Dosage: UNK
     Dates: start: 2014, end: 20170315
  23. CADEX [Concomitant]
     Dosage: 1 MG, UNK
     Dates: start: 201702, end: 20180312
  24. REPAGLINIDE. [Concomitant]
     Active Substance: REPAGLINIDE
     Dosage: UNK
     Dates: start: 2016
  25. ZAROXOLYN [Concomitant]
     Active Substance: METOLAZONE
     Dosage: 5 MG, UNK
     Dates: start: 20170903
  26. CLEXANE [Concomitant]
     Active Substance: ENOXAPARIN SODIUM
     Dosage: UNK
     Dates: start: 2015
  27. VECTOR [Concomitant]
     Dosage: 80 MG, UNK
     Dates: start: 2016
  28. ROCEPHINE [Concomitant]
     Active Substance: CEFTRIAXONE SODIUM
     Dosage: UNK
     Dates: start: 20180122, end: 20180125
  29. REVATIO [Concomitant]
     Active Substance: SILDENAFIL CITRATE
     Dosage: UNK
     Dates: start: 201604, end: 20170726
  30. UPTRAVI [Suspect]
     Active Substance: SELEXIPAG
     Dosage: 400 MCG, BID
     Route: 048
     Dates: start: 20180511, end: 20180516
  31. UPTRAVI [Suspect]
     Active Substance: SELEXIPAG
     Dosage: 300 MCG, BID
     Route: 048
     Dates: start: 20180517
  32. CARDILOC [Concomitant]
     Active Substance: BISOPROLOL FUMARATE
     Dosage: 2.5 MG, UNK
     Dates: start: 2015
  33. OMEPRADEX [Concomitant]
     Active Substance: OMEPRAZOLE
  34. ALPHA D3 [Concomitant]
     Active Substance: ALFACALCIDOL
     Dosage: UNK
     Dates: start: 20180128, end: 20180128
  35. ZANTAC [Concomitant]
     Active Substance: RANITIDINE HYDROCHLORIDE
     Dosage: UNK
     Dates: start: 20180313, end: 20180313

REACTIONS (22)
  - Renal impairment [Not Recovered/Not Resolved]
  - Haemodialysis [Unknown]
  - Metabolic acidosis [Unknown]
  - Wrong dose [Recovered/Resolved]
  - Haemoglobin decreased [Recovering/Resolving]
  - Wrong technique in product usage process [Recovered/Resolved]
  - Localised oedema [Recovering/Resolving]
  - Pulmonary oedema [Unknown]
  - Acute kidney injury [Unknown]
  - Iron deficiency anaemia [Unknown]
  - Weight decreased [Recovering/Resolving]
  - Nausea [Not Recovered/Not Resolved]
  - Oedema peripheral [Recovering/Resolving]
  - Blood creatinine increased [Unknown]
  - Peritoneal dialysis [Unknown]
  - Product communication issue [Recovered/Resolved]
  - Dyspnoea exertional [Recovering/Resolving]
  - Diarrhoea [Not Recovered/Not Resolved]
  - Gastritis [Unknown]
  - Concomitant disease aggravated [Recovering/Resolving]
  - Vomiting [Not Recovered/Not Resolved]
  - Transfusion [Unknown]

NARRATIVE: CASE EVENT DATE: 2018
